FAERS Safety Report 6371401-X (Version None)
Quarter: 2009Q3

REPORT INFORMATION
  Report Type: 
  Country: None (occurrence: None)
  Receive Date: 20090923
  Receipt Date: 20070719
  Transmission Date: 20100115
  Serious: Yes (Hospitalization)
  Sender: FDA-Public Use
  Company Number: US-ASTRAZENECA-2007UW12138

PATIENT
  Age: 33 Year
  Sex: Male
  Weight: 127 kg

DRUGS (7)
  1. SEROQUEL [Suspect]
     Indication: INSOMNIA
     Route: 048
     Dates: start: 20050322
  2. SEROQUEL [Suspect]
     Indication: RESTLESSNESS
     Route: 048
     Dates: start: 20050322
  3. SEROQUEL [Suspect]
     Indication: AGITATION
     Route: 048
     Dates: start: 20050322
  4. SEROQUEL [Suspect]
     Dosage: 150 TO 400 MG
     Route: 048
     Dates: start: 20050322, end: 20060428
  5. SEROQUEL [Suspect]
     Dosage: 150 TO 400 MG
     Route: 048
     Dates: start: 20050322, end: 20060428
  6. SEROQUEL [Suspect]
     Dosage: 150 TO 400 MG
     Route: 048
     Dates: start: 20050322, end: 20060428
  7. XANAX [Concomitant]
     Indication: ANXIETY
     Dates: start: 20060428

REACTIONS (4)
  - DIABETES MELLITUS [None]
  - DIABETIC KETOACIDOSIS [None]
  - TYPE 1 DIABETES MELLITUS [None]
  - TYPE 2 DIABETES MELLITUS [None]
